FAERS Safety Report 16989833 (Version 2)
Quarter: 2019Q4

REPORT INFORMATION
  Report Type: Spontaneous
  Country: ES (occurrence: ES)
  Receive Date: 20191104
  Receipt Date: 20191115
  Transmission Date: 20200122
  Serious: Yes (Other)
  Sender: FDA-Public Use
  Company Number: ES-OTSUKA-2019_036866

PATIENT
  Age: 47 Year
  Sex: Male
  Weight: 67 kg

DRUGS (11)
  1. TOLVAPTAN [Suspect]
     Active Substance: TOLVAPTAN
     Indication: FATIGUE
     Dosage: 15 MG, QD
     Route: 065
     Dates: start: 20190308
  2. PROCORALAN [Concomitant]
     Active Substance: IVABRADINE
     Indication: CARDIAC VALVE DISEASE
     Dosage: 10 MG, QD (HALF A TABLET EVERY 12 HOURS)
     Route: 065
     Dates: start: 20180223
  3. SEGURIL [Concomitant]
     Active Substance: FUROSEMIDE
     Indication: CARDIAC VALVE DISEASE
     Dosage: 40 MG, QD
     Route: 065
     Dates: start: 20180327
  4. SAMSCA [Suspect]
     Active Substance: TOLVAPTAN
     Indication: FATIGUE
     Dosage: 30 MG, QD
     Route: 065
     Dates: start: 20180427
  5. HYGROTON [Concomitant]
     Active Substance: CHLORTHALIDONE
     Indication: CARDIAC VALVE DISEASE
     Dosage: 0.5 DF, QD
     Route: 065
     Dates: start: 20190304
  6. ZEMPLAR [Concomitant]
     Active Substance: PARICALCITOL
     Indication: HYPERPARATHYROIDISM SECONDARY
     Dosage: 1 ?G, QOD
     Route: 065
     Dates: start: 20190415
  7. EPLERENONE. [Concomitant]
     Active Substance: EPLERENONE
     Indication: CARDIAC VALVE DISEASE
     Dosage: 50 MG, QD
     Route: 048
     Dates: start: 20190304
  8. AMIODARONA [Concomitant]
     Active Substance: AMIODARONE
     Indication: ATRIAL SEPTAL DEFECT
     Dosage: 5 DF, QW
     Route: 065
     Dates: start: 20170704
  9. ENTRESTO [Suspect]
     Active Substance: SACUBITRIL\VALSARTAN
     Indication: FATIGUE
     Dosage: 1 DF, QD (HALF A TABLET EVERY 12 HOURS)
     Route: 048
     Dates: start: 20190304
  10. BISOPROLOL [Concomitant]
     Active Substance: BISOPROLOL
     Indication: ATRIAL SEPTAL DEFECT
     Dosage: 2.5 MG, QD
     Route: 065
     Dates: start: 20180829
  11. REVATIO [Suspect]
     Active Substance: SILDENAFIL CITRATE
     Indication: PULMONARY FIBROSIS
     Dosage: 20 MG, TID (1 TABLET EVERY 8 HOURS)
     Route: 065
     Dates: start: 20170327

REACTIONS (3)
  - Presyncope [Recovered/Resolved]
  - Loss of consciousness [Recovered/Resolved]
  - Product use in unapproved indication [Unknown]

NARRATIVE: CASE EVENT DATE: 20180427
